FAERS Safety Report 10186260 (Version 1)
Quarter: 2014Q2

REPORT INFORMATION
  Report Type: Report from Study
  Country: US (occurrence: US)
  Receive Date: 20140521
  Receipt Date: 20140521
  Transmission Date: 20141212
  Serious: Yes (Hospitalization)
  Sender: FDA-Public Use
  Company Number: US-ABBVIE-14P-163-1236750-00

PATIENT
  Age: 58 Year
  Sex: Male
  Weight: 72.64 kg

DRUGS (4)
  1. HUMIRA [Suspect]
     Indication: CROHN^S DISEASE
  2. PEPCID [Concomitant]
     Indication: GASTROOESOPHAGEAL REFLUX DISEASE
  3. IMODIUM [Concomitant]
     Indication: CROHN^S DISEASE
  4. ASPIRIN [Concomitant]
     Indication: CORONARY ARTERY OCCLUSION

REACTIONS (4)
  - Coronary artery occlusion [Recovered/Resolved]
  - Pulmonary embolism [Recovered/Resolved]
  - Staphylococcal infection [Recovered/Resolved]
  - Crohn^s disease [Not Recovered/Not Resolved]
